FAERS Safety Report 15368660 (Version 3)
Quarter: 2019Q1

REPORT INFORMATION
  Report Type: Spontaneous
  Country: PT (occurrence: PT)
  Receive Date: 20180911
  Receipt Date: 20190105
  Transmission Date: 20190417
  Serious: Yes (Hospitalization, Other)
  Sender: FDA-Public Use
  Company Number: PT-AUROBINDO-AUR-APL-2018-044136

PATIENT
  Age: 64 Year
  Sex: Female

DRUGS (7)
  1. AMITRIPTYLINE [Suspect]
     Active Substance: AMITRIPTYLINE
     Indication: DEPRESSION
     Dosage: 25 MILLIGRAM, ONCE A DAY
     Route: 065
     Dates: start: 2012
  2. LEVOFLOXACIN. [Concomitant]
     Active Substance: LEVOFLOXACIN
     Indication: CELLULITIS
     Dosage: 500 MILLIGRAM, ONCE A DAY
     Route: 065
     Dates: start: 20160501
  3. ACETAMINOPHEN. [Concomitant]
     Active Substance: ACETAMINOPHEN
     Indication: ANALGESIC THERAPY
     Dosage: 3000 MILLIGRAM, ONCE A DAY
     Route: 065
     Dates: start: 20160501
  4. TRAMADOL. [Suspect]
     Active Substance: TRAMADOL
     Indication: ANALGESIC THERAPY
     Dosage: 225 MILLIGRAM, ONCE A DAY
     Route: 065
     Dates: start: 20160505, end: 20160509
  5. ACETAMINOPHEN. [Concomitant]
     Active Substance: ACETAMINOPHEN
     Indication: CELLULITIS
  6. TRAMADOL. [Suspect]
     Active Substance: TRAMADOL
     Indication: CELLULITIS
  7. ESCITALOPRAM [Suspect]
     Active Substance: ESCITALOPRAM OXALATE
     Indication: DEPRESSION
     Dosage: 20 MILLIGRAM, ONCE A DAY
     Route: 065
     Dates: start: 2012

REACTIONS (7)
  - Disinhibition [Recovered/Resolved]
  - Restlessness [Recovered/Resolved]
  - Hallucination, visual [Recovered/Resolved]
  - Mania [Recovered/Resolved]
  - Psychomotor hyperactivity [Recovered/Resolved]
  - Euphoric mood [Recovered/Resolved]
  - Insomnia [Recovered/Resolved]

NARRATIVE: CASE EVENT DATE: 20160507
